FAERS Safety Report 9727421 (Version 1)
Quarter: 2013Q4

REPORT INFORMATION
  Report Type: Spontaneous
  Country: US (occurrence: US)
  Receive Date: 20131203
  Receipt Date: 20131203
  Transmission Date: 20140711
  Serious: Yes (Death)
  Sender: FDA-Public Use
  Company Number: US-ACTAVIS-2013-21630

PATIENT
  Age: 39 Year
  Sex: Female
  Weight: 73 kg

DRUGS (2)
  1. FENTANYL-100 (WATSON LABORATORIES) [Suspect]
     Indication: PAIN
     Dosage: ONE 100 MCG PATCH, Q 72 HRS
     Route: 062
     Dates: start: 20130918
  2. ACTEMRA [Suspect]
     Indication: RHEUMATOID ARTHRITIS
     Dosage: ONCE MONTHLY
     Route: 058

REACTIONS (3)
  - Pulmonary oedema [Fatal]
  - Toxicity to various agents [Fatal]
  - Angiopathy [Fatal]
